FAERS Safety Report 6013280-6 (Version None)
Quarter: 2008Q4

REPORT INFORMATION
  Report Type: 
  Country: None (occurrence: None)
  Receive Date: 20081218
  Receipt Date: 20081218
  Transmission Date: 20090506
  Serious: Yes (Other)
  Sender: FDA-Public Use
  Company Number: None

PATIENT
  Age: 33 Year
  Sex: Female
  Weight: 40.8237 kg

DRUGS (2)
  1. VENTOLIN HFA [Suspect]
     Indication: ASTHMA
     Dosage: 1 TO 2 PUFFS EVERY 4 HRS OR AS INHAL
     Route: 055
     Dates: start: 20081215, end: 20081216
  2. PREDNISOLONE INJECTION [Concomitant]

REACTIONS (3)
  - DIZZINESS [None]
  - DRUG INEFFECTIVE [None]
  - RASH [None]
